FAERS Safety Report 18378444 (Version 1)
Quarter: 2020Q4

REPORT INFORMATION
  Report Type: Spontaneous
  Country: US (occurrence: US)
  Receive Date: 20201013
  Receipt Date: 20201013
  Transmission Date: 20210114
  Serious: No
  Sender: FDA-Public Use
  Company Number: US-AMNEAL PHARMACEUTICALS-2020-AMRX-02931

PATIENT
  Age: 13 Year
  Sex: Male

DRUGS (1)
  1. ISOTRETINOIN. [Suspect]
     Active Substance: ISOTRETINOIN
     Indication: ACNE
     Dosage: 1 CAPSULES, QD, FOR 6 MONTHS
     Route: 048
     Dates: start: 20200321, end: 20200916

REACTIONS (1)
  - Pyogenic granuloma [Unknown]

NARRATIVE: CASE EVENT DATE: 20200831
